FAERS Safety Report 7397027-7 (Version None)
Quarter: 2011Q2

REPORT INFORMATION
  Report Type: 
  Country: None (occurrence: None)
  Receive Date: 20110406
  Receipt Date: 20101026
  Transmission Date: 20111010
  Serious: Yes (Hospitalization, Other)
  Sender: FDA-Public Use
  Company Number: US-BAYER-201024704NA

PATIENT
  Sex: Female
  Weight: 93.424 kg

DRUGS (9)
  1. YAZ [Suspect]
     Indication: PRODUCT USED FOR UNKNOWN INDICATION
     Dosage: UNK
     Route: 048
     Dates: start: 20080701, end: 20090201
  2. PROTONIX [Concomitant]
     Indication: ABDOMINAL PAIN UPPER
     Dosage: UNK
     Route: 048
     Dates: start: 20030601
  3. YASMIN [Suspect]
     Dosage: UNK
     Dates: start: 20060130
  4. DEPO-PROVERA [Concomitant]
     Indication: CONTRACEPTION
     Dosage: UNK
     Route: 030
     Dates: start: 20011001
  5. YASMIN [Suspect]
     Indication: PRODUCT USED FOR UNKNOWN INDICATION
     Dosage: UNK
     Route: 048
     Dates: start: 20030501
  6. IBUPROFEN [Concomitant]
     Dosage: 800 MG, PRN
     Dates: start: 20030101
  7. ERGOTAMIN-COFFEIN [Concomitant]
     Dosage: UNK
     Dates: start: 20080901, end: 20080901
  8. GENTAMICIN [Concomitant]
     Indication: EYE INFECTION
     Dosage: UNK
     Dates: start: 20080701, end: 20080701
  9. TUMS [CALCIUM CARBONATE] [Concomitant]
     Indication: DYSPEPSIA
     Dosage: UNK
     Route: 048
     Dates: start: 20080923, end: 20080923

REACTIONS (3)
  - CHEST DISCOMFORT [None]
  - CHOLECYSTITIS CHRONIC [None]
  - ABDOMINAL PAIN UPPER [None]
